FAERS Safety Report 14747798 (Version 1)
Quarter: 2018Q2

REPORT INFORMATION
  Report Type: Spontaneous
  Country: US (occurrence: US)
  Receive Date: 20180411
  Receipt Date: 20180411
  Transmission Date: 20180711
  Serious: Yes (Other)
  Sender: FDA-Public Use
  Company Number: PHEH2018US013263

PATIENT
  Sex: Female

DRUGS (1)
  1. ESTRADIOL. [Suspect]
     Active Substance: ESTRADIOL
     Dosage: 0.05 MG, (TWICE A WEEK)
     Route: 062
     Dates: start: 20171219, end: 20180326

REACTIONS (3)
  - Feeling abnormal [Unknown]
  - Haemorrhage [Unknown]
  - Asthenia [Unknown]
